FAERS Safety Report 14009115 (Version 3)
Quarter: 2017Q4

REPORT INFORMATION
  Report Type: Spontaneous
  Country: US (occurrence: US)
  Receive Date: 20170925
  Receipt Date: 20171128
  Transmission Date: 20180321
  Serious: No
  Sender: FDA-Public Use
  Company Number: US-PFIZER INC-2017408704

PATIENT
  Age: 69 Year
  Sex: Female

DRUGS (4)
  1. LATANOPROST. [Suspect]
     Active Substance: LATANOPROST
     Dosage: 2 DROPS, 1X/DAY(1 DROP EACH EYE AT BEDTIME)
     Route: 047
     Dates: start: 20161223
  2. LISINOPRIL. [Concomitant]
     Active Substance: LISINOPRIL
     Indication: HYPERTENSION
     Dosage: 10 MG (1 TAB), 1X/DAY
     Dates: start: 20170118
  3. ICAPS [Concomitant]
     Active Substance: MINERALS\VITAMINS
     Indication: SUPPLEMENTATION THERAPY
     Dosage: UNK, DAILY
  4. LATANOPROST. [Suspect]
     Active Substance: LATANOPROST
     Indication: GLAUCOMA
     Dosage: 2 DROPS, DAILY (ONE DROP IN BOTH EYES NIGHTLY)
     Route: 031

REACTIONS (7)
  - Conjunctival abrasion [Recovered/Resolved]
  - Eye irritation [Unknown]
  - Product quality issue [Unknown]
  - Eye pain [Unknown]
  - Conjunctival irritation [Recovered/Resolved]
  - Ocular hyperaemia [Unknown]
  - Photophobia [Unknown]

NARRATIVE: CASE EVENT DATE: 20170607
